FAERS Safety Report 6633568-5 (Version None)
Quarter: 2010Q1

REPORT INFORMATION
  Report Type: 
  Country: None (occurrence: None)
  Receive Date: 20100312
  Receipt Date: 20100204
  Transmission Date: 20100710
  Serious: No
  Sender: FDA-Public Use
  Company Number: US-ABBOTT-10P-163-0624720-00

PATIENT

DRUGS (1)
  1. ERYTHROMYCIN [Suspect]
     Indication: INFECTION
     Route: 065

REACTIONS (2)
  - ERYTHEMA [None]
  - PRURITUS [None]
